FAERS Safety Report 24642725 (Version 1)
Quarter: 2024Q4

REPORT INFORMATION
  Report Type: Report from Study
  Country: GB (occurrence: GB)
  Receive Date: 20241120
  Receipt Date: 20241120
  Transmission Date: 20250115
  Serious: Yes (Hospitalization)
  Sender: EISAI
  Company Number: GB-Eisai-EC-2024-178797

PATIENT
  Sex: Male

DRUGS (13)
  1. LENVATINIB [Suspect]
     Active Substance: LENVATINIB
     Indication: Ewing^s sarcoma
     Route: 048
     Dates: start: 20240716, end: 20240930
  2. IFOSFAMIDE [Suspect]
     Active Substance: IFOSFAMIDE
     Indication: Ewing^s sarcoma
     Dosage: 5 DAYS OF EVERY CYCLE
     Route: 042
     Dates: start: 20240716, end: 20240922
  3. ONDANSETRON [Concomitant]
     Active Substance: ONDANSETRON
     Indication: Antiemetic supportive care
     Route: 042
     Dates: start: 20240716
  4. LEVOTHYROXINE [Concomitant]
     Active Substance: LEVOTHYROXINE
     Indication: Hypothyroid cardiomyopathy
     Route: 048
     Dates: start: 20240904
  5. DOCUSATE SODIUM [Concomitant]
     Active Substance: DOCUSATE SODIUM
     Indication: Laxative supportive care
     Route: 048
  6. MORPHINE SULFATE [Concomitant]
     Active Substance: MORPHINE SULFATE
     Indication: Pain
     Route: 048
     Dates: start: 20240610
  7. COTRIMOXAZOLE [Concomitant]
     Active Substance: SULFAMETHOXAZOLE\TRIMETHOPRIM
     Indication: Clostridium difficile infection
     Route: 042
     Dates: start: 20241008, end: 20241010
  8. METOCLOPRAMIDE [Concomitant]
     Active Substance: METOCLOPRAMIDE
     Route: 048
     Dates: start: 20240716
  9. CHLORPHENIRAMINE MALEATE [Concomitant]
     Active Substance: CHLORPHENIRAMINE MALEATE
     Indication: Pruritus
     Route: 048
     Dates: start: 20241001
  10. VANCOMYCIN [Concomitant]
     Active Substance: VANCOMYCIN
     Indication: Clostridium difficile infection
     Route: 048
     Dates: start: 20241007
  11. CEFTAZIDIME [Concomitant]
     Active Substance: CEFTAZIDIME
     Indication: Infection
     Route: 042
     Dates: start: 20241003, end: 20241007
  12. GENTAMICIN [Concomitant]
     Active Substance: GENTAMICIN
     Route: 042
     Dates: start: 20241003, end: 20241003
  13. POTASSIUM CHLORIDE [Concomitant]
     Active Substance: POTASSIUM CHLORIDE
     Route: 048
     Dates: start: 20241004

REACTIONS (1)
  - Skin infection [Recovered/Resolved]

NARRATIVE: CASE EVENT DATE: 20241011
